FAERS Safety Report 25633618 (Version 1)
Quarter: 2025Q3

REPORT INFORMATION
  Report Type: Spontaneous
  Country: US (occurrence: US)
  Receive Date: 20250801
  Receipt Date: 20250801
  Transmission Date: 20251020
  Serious: No
  Sender: CEDIPROF
  Company Number: US-CEDIPROF, INC.-2025CED00008

PATIENT
  Age: 59 Year

DRUGS (1)
  1. DEXTROAMPHETAMINE SACCHARATE, AMPHETAMINE ASPARTATE, DEXTROAMPHETAMINE [Suspect]
     Active Substance: AMPHETAMINE ASPARTATE\AMPHETAMINE SULFATE\DEXTROAMPHETAMINE SACCHARATE\DEXTROAMPHETAMINE SULFATE
     Indication: Attention deficit hyperactivity disorder
     Route: 048

REACTIONS (9)
  - Nausea [Unknown]
  - Dizziness [Unknown]
  - Feeling jittery [Unknown]
  - Confusional state [Unknown]
  - Feeling abnormal [Unknown]
  - Lethargy [Unknown]
  - Hunger [Unknown]
  - Stomatitis [Unknown]
  - Product taste abnormal [Unknown]

NARRATIVE: CASE EVENT DATE: 20250701
